FAERS Safety Report 4398989-2 (Version None)
Quarter: 2004Q3

REPORT INFORMATION
  Report Type: 
  Country: None (occurrence: None)
  Receive Date: 20040712
  Receipt Date: 20040621
  Transmission Date: 20050211
  Serious: Yes (Other)
  Sender: FDA-Public Use
  Company Number: USA040670607

PATIENT
  Age: 83 Year
  Sex: Male

DRUGS (3)
  1. HUMULIN R [Suspect]
     Indication: DIABETES MELLITUS
     Dosage: 6 U DAY
     Dates: start: 19990101, end: 20040619
  2. HUMULIN N [Suspect]
     Indication: DIABETES MELLITUS
     Dosage: 12 U/L IN THE MORNING
     Dates: start: 19990101, end: 20040619
  3. HUMALOG [Suspect]
     Indication: DIABETES MELLITUS
     Dosage: 9 U DAY
     Dates: start: 20040619

REACTIONS (6)
  - BLOOD GLUCOSE DECREASED [None]
  - BLOOD GLUCOSE INCREASED [None]
  - CONDITION AGGRAVATED [None]
  - LOSS OF CONSCIOUSNESS [None]
  - PHARMACEUTICAL PRODUCT COMPLAINT [None]
  - TREMOR [None]
